FAERS Safety Report 15472378 (Version 2)
Quarter: 2018Q4

REPORT INFORMATION
  Report Type: Report from Study
  Country: ES (occurrence: ES)
  Receive Date: 20181008
  Receipt Date: 20181012
  Transmission Date: 20190205
  Serious: Yes (Hospitalization, Other)
  Sender: FDA-Public Use
  Company Number: ES-VELOXIS PHARMACEUTICALS, INC.-2018VELES1207

PATIENT
  Age: 55 Year
  Sex: Male
  Weight: 55 kg

DRUGS (6)
  1. ENVARSUS XR [Suspect]
     Active Substance: TACROLIMUS
     Dosage: UNK
     Dates: start: 20170328
  2. ENVARSUS XR [Suspect]
     Active Substance: TACROLIMUS
     Dosage: 3 MG, QD
     Route: 048
     Dates: start: 20170309
  3. ADOPORT [Suspect]
     Active Substance: TACROLIMUS
     Indication: LIVER TRANSPLANT
  4. ADOPORT [Suspect]
     Active Substance: TACROLIMUS
     Indication: IMMUNOSUPPRESSANT DRUG THERAPY
     Dosage: 5 MG, QD
     Route: 048
     Dates: start: 20170306
  5. ENVARSUS XR [Suspect]
     Active Substance: TACROLIMUS
     Indication: IMMUNOSUPPRESSANT DRUG THERAPY
     Dosage: 3.5 MG, QD
     Route: 048
     Dates: start: 20170306
  6. ENVARSUS XR [Suspect]
     Active Substance: TACROLIMUS
     Dosage: 3 MG, QD
     Dates: start: 20170314

REACTIONS (4)
  - Cholestasis [Unknown]
  - Liver transplant rejection [Recovered/Resolved]
  - Renal impairment [Recovered/Resolved with Sequelae]
  - Ascites [Recovered/Resolved]

NARRATIVE: CASE EVENT DATE: 20170306
